FAERS Safety Report 6283095-2 (Version None)
Quarter: 2009Q3

REPORT INFORMATION
  Report Type: 
  Country: None (occurrence: None)
  Receive Date: 20090724
  Receipt Date: 20090715
  Transmission Date: 20100115
  Serious: Yes (Hospitalization, Other)
  Sender: FDA-Public Use
  Company Number: A0793398A

PATIENT
  Sex: Male

DRUGS (8)
  1. SERETIDE [Suspect]
     Indication: ASTHMA
     Dosage: 2PUFF TWICE PER DAY
     Route: 055
     Dates: start: 20070101
  2. SERETIDE [Suspect]
     Route: 055
     Dates: start: 20050101
  3. CHLORTHALIDONE [Concomitant]
     Dosage: 1TAB PER DAY
     Route: 048
     Dates: start: 20090602
  4. AZITHROMYCIN [Concomitant]
     Dosage: 1TAB PER DAY
     Route: 048
     Dates: start: 20090602
  5. METICORTEN [Concomitant]
     Dosage: 1TAB PER DAY
     Route: 048
     Dates: start: 20090602
  6. ASPIRIN [Concomitant]
     Dosage: 2TAB PER DAY
     Dates: start: 20060101
  7. NIFEDIPINE [Concomitant]
     Dosage: 2TAB PER DAY
  8. DIABINESE [Concomitant]
     Dates: start: 20060101

REACTIONS (5)
  - AMNESIA [None]
  - APNOEA [None]
  - BRONCHITIS [None]
  - FATIGUE [None]
  - ISCHAEMIA [None]
